FAERS Safety Report 19512048 (Version 1)
Quarter: 2021Q3

REPORT INFORMATION
  Report Type: Spontaneous
  Country: GB (occurrence: GB)
  Receive Date: 20210709
  Receipt Date: 20210709
  Transmission Date: 20211014
  Serious: Yes (Hospitalization, Other)
  Sender: FDA-Public Use
  Company Number: GB-PFIZER INC-2021774436

PATIENT
  Age: 51 Year
  Sex: Female
  Weight: 83.2 kg

DRUGS (4)
  1. PARACETAMOL [Concomitant]
     Active Substance: ACETAMINOPHEN
  2. COVID?19 VACCINE [Concomitant]
     Indication: COVID-19 IMMUNISATION
     Dates: start: 20210417, end: 20210417
  3. SULFASALAZINE. [Suspect]
     Active Substance: SULFASALAZINE
     Indication: ARTHRITIS
     Dosage: INCREASED TO 2000MG PER DAY
     Route: 048
     Dates: start: 20210501, end: 20210528
  4. FLUCLOXACILLINE [Concomitant]
     Active Substance: FLUCLOXACILLIN

REACTIONS (14)
  - Gingival bleeding [Unknown]
  - Mouth ulceration [Recovered/Resolved]
  - Dermatitis allergic [Recovering/Resolving]
  - Dizziness [Recovered/Resolved]
  - Feeling cold [Recovered/Resolved]
  - Chills [Recovered/Resolved]
  - Lip swelling [Recovered/Resolved]
  - Dyspnoea [Recovered/Resolved]
  - Fatigue [Recovering/Resolving]
  - Nausea [Unknown]
  - Alanine aminotransferase increased [Not Recovered/Not Resolved]
  - Cough [Unknown]
  - Mouth swelling [Recovered/Resolved]
  - Tinnitus [Not Recovered/Not Resolved]

NARRATIVE: CASE EVENT DATE: 202105
